FAERS Safety Report 7826185-2 (Version None)
Quarter: 2011Q4

REPORT INFORMATION
  Report Type: 
  Country: None (occurrence: None)
  Receive Date: 20111020
  Receipt Date: 20111012
  Transmission Date: 20120403
  Serious: Yes (Hospitalization)
  Sender: FDA-Public Use
  Company Number: US-BIOGENIDEC-2011BI017050

PATIENT
  Age: 26 Year
  Sex: Female

DRUGS (4)
  1. ALBUTEROL [Concomitant]
     Indication: WHEEZING
  2. TYSABRI [Suspect]
     Indication: MULTIPLE SCLEROSIS
     Route: 042
     Dates: start: 20101202, end: 20110701
  3. ALLEGRA [Concomitant]
     Indication: PREMEDICATION
  4. NEURONTIN [Concomitant]

REACTIONS (7)
  - CLOSTRIDIAL INFECTION [None]
  - PAIN [None]
  - BRONCHITIS [None]
  - MULTIPLE SCLEROSIS RELAPSE [None]
  - DIVERTICULITIS [None]
  - PAIN IN EXTREMITY [None]
  - URINARY TRACT INFECTION [None]
